FAERS Safety Report 17214384 (Version 1)
Quarter: 2019Q4

REPORT INFORMATION
  Report Type: Spontaneous
  Country: US (occurrence: US)
  Receive Date: 20191230
  Receipt Date: 20191230
  Transmission Date: 20200122
  Serious: No
  Sender: FDA-Public Use
  Company Number: US-IGSA-SR10009627

PATIENT
  Sex: Male
  Weight: 61 kg

DRUGS (11)
  1. DIPHENHYDRAMINE. [Concomitant]
     Active Substance: DIPHENHYDRAMINE
  2. NORMAL SALINE [Concomitant]
     Active Substance: SODIUM CHLORIDE
     Dosage: 0.9 %, UNK
  3. OXYCONTIN [Concomitant]
     Active Substance: OXYCODONE HYDROCHLORIDE
     Dosage: 10 MG, BID
  4. GAMUNEX-C [Suspect]
     Active Substance: HUMAN IMMUNOGLOBULIN G
     Indication: IMMUNODEFICIENCY COMMON VARIABLE
     Dosage: 30 G, Q.4WK.
     Route: 042
     Dates: start: 20191113
  5. HEPARIN [Concomitant]
     Active Substance: HEPARIN SODIUM
     Dosage: 100 U/ML, UNK
  6. LMX                                /00033401/ [Concomitant]
     Indication: PREMEDICATION
     Dosage: 4 %, UNK
     Route: 061
     Dates: start: 20191113
  7. EPINEPHRINE. [Concomitant]
     Active Substance: EPINEPHRINE
  8. GAMUNEX-C [Suspect]
     Active Substance: HUMAN IMMUNOGLOBULIN G
     Dosage: 30 G, Q.4WK.
     Route: 042
     Dates: start: 20160502
  9. GAMUNEX-C [Suspect]
     Active Substance: HUMAN IMMUNOGLOBULIN G
     Dosage: 30 G, Q.4WK.
     Route: 042
     Dates: start: 20191211
  10. ACETAMINOPHEN. [Concomitant]
     Active Substance: ACETAMINOPHEN
  11. GAMUNEX-C [Suspect]
     Active Substance: HUMAN IMMUNOGLOBULIN G
     Dosage: 30 G, Q.4WK.
     Route: 042

REACTIONS (1)
  - Rash [Recovered/Resolved]

NARRATIVE: CASE EVENT DATE: 20191113
